FAERS Safety Report 9563485 (Version 1)
Quarter: 2013Q3

REPORT INFORMATION
  Report Type: Spontaneous
  Country: None (occurrence: None)
  Receive Date: 20130926
  Receipt Date: 20130926
  Transmission Date: 20140515
  Serious: Yes (Life-Threatening, Hospitalization, Disabling)
  Sender: FDA-Public Use
  Company Number: 2013/188

PATIENT
  Age: 77 Year
  Sex: Male
  Weight: 92.7 kg

DRUGS (6)
  1. TERBINAFINE [Suspect]
     Indication: ONYCHOMYCOSIS
     Route: 048
     Dates: start: 20130806, end: 20130819
  2. ATORVASTATIN (NO PREF. NAME) [Concomitant]
  3. CLOPIDOGREL (NO PREF. NAME) [Concomitant]
  4. METRONIDAZOLE (NO PREF. NAME) [Concomitant]
  5. FLUCLOXACILLIN (NO PREF. NAME) [Concomitant]
  6. PENICILLIN V (NO PREF. NAME) [Concomitant]

REACTIONS (5)
  - Dermatitis exfoliative [None]
  - Psoriasis [None]
  - Arthralgia [None]
  - Rash generalised [None]
  - Renal failure acute [None]
